FAERS Safety Report 19595723 (Version 4)
Quarter: 2021Q4

REPORT INFORMATION
  Report Type: Report from Study
  Country: None (occurrence: AR)
  Receive Date: 20210723
  Receipt Date: 20211006
  Transmission Date: 20220303
  Serious: Yes (Death, Hospitalization, Other)
  Sender: FDA-Public Use
  Company Number: AR-ABBVIE-21K-007-4002701-00

PATIENT
  Age: 58 Year
  Sex: Male

DRUGS (1)
  1. HUMIRA [Suspect]
     Active Substance: ADALIMUMAB
     Indication: Psoriasis
     Route: 058
     Dates: start: 20150721

REACTIONS (14)
  - Metastases to stomach [Fatal]
  - Metastases to lung [Fatal]
  - Metastases to central nervous system [Fatal]
  - Small intestinal perforation [Not Recovered/Not Resolved]
  - Brain oedema [Unknown]
  - Face oedema [Not Recovered/Not Resolved]
  - Neoplasm [Not Recovered/Not Resolved]
  - Lung neoplasm [Not Recovered/Not Resolved]
  - Abdominal operation [Unknown]
  - Mobility decreased [Recovered/Resolved]
  - Speech disorder [Recovered/Resolved]
  - Bacterial infection [Recovering/Resolving]
  - Abdominal pain [Not Recovered/Not Resolved]
  - Abdominal pain upper [Unknown]

NARRATIVE: CASE EVENT DATE: 20210626
